FAERS Safety Report 5563688-8 (Version None)
Quarter: 2007Q4

REPORT INFORMATION
  Report Type: 
  Country: None (occurrence: None)
  Receive Date: 20071217
  Receipt Date: 20070730
  Transmission Date: 20080405
  Serious: No
  Sender: FDA-Public Use
  Company Number: US-ASTRAZENECA-2007UW18237

PATIENT
  Age: 60 Year
  Sex: Female
  Weight: 65.8 kg

DRUGS (6)
  1. CRESTOR [Suspect]
     Indication: BLOOD CHOLESTEROL INCREASED
     Route: 048
     Dates: start: 20070725, end: 20070729
  2. TOPROL-XL [Concomitant]
  3. SINGULAIR [Concomitant]
  4. NYSTATIN [Concomitant]
  5. ACIDOPHILUS [Concomitant]
  6. CIPROFLOXACIN HCL [Concomitant]
     Indication: URINARY TRACT INFECTION

REACTIONS (1)
  - POLLAKIURIA [None]
